FAERS Safety Report 17699096 (Version 1)
Quarter: 2020Q2

REPORT INFORMATION
  Report Type: Spontaneous
  Country: US (occurrence: US)
  Receive Date: 20200422
  Receipt Date: 20200422
  Transmission Date: 20200714
  Serious: Yes (Other)
  Sender: FDA-Public Use
  Company Number: None

PATIENT
  Age: 35 Year
  Sex: Female
  Weight: 60.75 kg

DRUGS (3)
  1. MULTI VITAMIN [Concomitant]
     Active Substance: VITAMINS
  2. ASSURED EPSOM SALT [Suspect]
     Active Substance: MAGNESIUM SULFATE HEPTAHYDRATE
     Indication: STRESS
     Dates: start: 20200418, end: 20200418
  3. ONE-A-DAY MULTI VITAMIN [Concomitant]

REACTIONS (7)
  - Loss of consciousness [None]
  - Hyperhidrosis [None]
  - Tremor [None]
  - Fall [None]
  - Dizziness [None]
  - Diarrhoea [None]
  - Feeling hot [None]

NARRATIVE: CASE EVENT DATE: 20200419
